FAERS Safety Report 7750331-2 (Version None)
Quarter: 2011Q3

REPORT INFORMATION
  Report Type: 
  Country: None (occurrence: None)
  Receive Date: 20110914
  Receipt Date: 20110913
  Transmission Date: 20111222
  Serious: Yes (Hospitalization)
  Sender: FDA-Public Use
  Company Number: DE-PFIZER INC-810-0719-M0200001

PATIENT
  Sex: Male

DRUGS (2)
  1. CERIVASTATIN [Suspect]
     Indication: ILL-DEFINED DISORDER
     Route: 048
  2. LOPID [Suspect]
     Route: 065

REACTIONS (3)
  - CHROMATURIA [None]
  - MYALGIA [None]
  - CARDIAC DISORDER [None]
